FAERS Safety Report 19010830 (Version 2)
Quarter: 2021Q2

REPORT INFORMATION
  Report Type: Other
  Country: AR (occurrence: AR)
  Receive Date: 20210315
  Receipt Date: 20210406
  Transmission Date: 20210717
  Serious: Yes (Other)
  Sender: FDA-Public Use
  Company Number: AR-ROCHE-2787102

PATIENT
  Age: 18 Year
  Sex: Female

DRUGS (2)
  1. XOLAIR [Suspect]
     Active Substance: OMALIZUMAB
     Indication: ASTHMA
     Dosage: 750 MG, QMO
     Route: 058
     Dates: start: 20100101, end: 20190101
  2. OXYGEN. [Concomitant]
     Active Substance: OXYGEN
     Indication: PRODUCT USED FOR UNKNOWN INDICATION
     Dosage: UNK
     Route: 065

REACTIONS (10)
  - Agitation [Unknown]
  - Off label use [Unknown]
  - Asthmatic crisis [Not Recovered/Not Resolved]
  - Bronchospasm [Recovered/Resolved]
  - Pulmonary pain [Unknown]
  - Spirometry abnormal [Not Recovered/Not Resolved]
  - Intentional product use issue [Unknown]
  - Gait disturbance [Unknown]
  - Cyst [Recovered/Resolved]
  - Respiratory disorder [Unknown]

NARRATIVE: CASE EVENT DATE: 201901
